FAERS Safety Report 23440503 (Version 4)
Quarter: 2024Q3

REPORT INFORMATION
  Report Type: Spontaneous
  Country: US (occurrence: US)
  Receive Date: 20240125
  Receipt Date: 20240814
  Transmission Date: 20241017
  Serious: Yes (Hospitalization, Other)
  Sender: CSL BEHRING
  Company Number: US-BEH-2024167734

PATIENT
  Age: 35 Year
  Sex: Female
  Weight: 63.492 kg

DRUGS (2)
  1. HAEGARDA [Suspect]
     Active Substance: HUMAN C1-ESTERASE INHIBITOR
     Indication: Hereditary angioedema
     Dosage: 3800 INTERNATIONAL UNIT, BIW
     Route: 058
     Dates: start: 202310
  2. HAEGARDA [Suspect]
     Active Substance: HUMAN C1-ESTERASE INHIBITOR
     Indication: Prophylaxis
     Dosage: 4000.0 IU/KG
     Route: 058

REACTIONS (6)
  - Hereditary angioedema [Unknown]
  - Delivery [Recovered/Resolved]
  - Hereditary angioedema [Unknown]
  - Hereditary angioedema [Unknown]
  - Maternal exposure during pregnancy [Unknown]
  - Weight decreased [Unknown]

NARRATIVE: CASE EVENT DATE: 20231226
